FAERS Safety Report 10395283 (Version 1)
Quarter: 2014Q3

REPORT INFORMATION
  Report Type: Report from Study
  Country: US (occurrence: US)
  Receive Date: 20140820
  Receipt Date: 20140820
  Transmission Date: 20150326
  Serious: Yes (Death)
  Sender: FDA-Public Use
  Company Number: PHEH2014US016521

PATIENT
  Sex: Male

DRUGS (6)
  1. EXJADE [Suspect]
     Active Substance: DEFERASIROX
     Indication: BONE MARROW INFILTRATION
  2. MULTI-VIT [Concomitant]
     Active Substance: VITAMINS
  3. ASPIRIN. [Concomitant]
     Active Substance: ASPIRIN
     Dosage: UNK UKN, UNK
  4. EXJADE [Suspect]
     Active Substance: DEFERASIROX
     Indication: MYELOFIBROSIS
     Dosage: 1500 MG, QD (3 TABLETS)
     Route: 048
     Dates: start: 20121212
  5. MAGAN//MAGNESIUM SALICYLATE [Concomitant]
     Dosage: UNK UKN, UNK
  6. LUTEIN [Concomitant]
     Active Substance: LUTEIN
     Dosage: UNK UKN, UNK

REACTIONS (1)
  - Death [Fatal]
